FAERS Safety Report 6801151-4 (Version None)
Quarter: 2010Q2

REPORT INFORMATION
  Report Type: 
  Country: None (occurrence: None)
  Receive Date: 20100629
  Receipt Date: 20100617
  Transmission Date: 20101027
  Serious: Yes (Other)
  Sender: FDA-Public Use
  Company Number: BR-PFIZER INC-2010075908

PATIENT
  Sex: Female

DRUGS (1)
  1. DIABINESE [Suspect]
     Dosage: UNK
     Route: 048

REACTIONS (1)
  - HEPATIC CIRRHOSIS [None]
